FAERS Safety Report 8454869-4 (Version None)
Quarter: 2012Q2

REPORT INFORMATION
  Report Type: 
  Country: None (occurrence: None)
  Receive Date: 20120621
  Receipt Date: 20120611
  Transmission Date: 20120825
  Serious: Yes (Hospitalization)
  Sender: FDA-Public Use
  Company Number: US-BAYER-2012-031246

PATIENT
  Age: 21 Year
  Sex: Female
  Weight: 58.957 kg

DRUGS (6)
  1. DROSPIRENONE AND ETHINYL ESTRADIOL [Suspect]
     Indication: PREMENSTRUAL SYNDROME
     Dosage: UNK
     Dates: start: 20070101, end: 20110501
  2. DROSPIRENONE AND ETHINYL ESTRADIOL [Suspect]
     Indication: MENSTRUAL CYCLE MANAGEMENT
  3. DROSPIRENONE AND ETHINYL ESTRADIOL [Suspect]
  4. ACETAMINOPHEN AND TRAMADOL HCL [Concomitant]
     Dosage: UNK
     Dates: start: 20110505
  5. ULTRACET [Concomitant]
     Dosage: UNK UNK, PRN
  6. PREDNISONE TAB [Concomitant]
     Dosage: 20 MG, QD
     Route: 048
     Dates: start: 20110429

REACTIONS (4)
  - INJURY [None]
  - THROMBOSIS [None]
  - PAIN [None]
  - DEEP VEIN THROMBOSIS [None]
